FAERS Safety Report 4375268-0 (Version None)
Quarter: 2004Q2

REPORT INFORMATION
  Report Type: 
  Country: None (occurrence: None)
  Receive Date: 20040609
  Receipt Date: 20040525
  Transmission Date: 20050107
  Serious: Yes (Other)
  Sender: FDA-Public Use
  Company Number: 00618

PATIENT
  Sex: Female

DRUGS (8)
  1. MEDROXYPROGESTERONE ACETATE [Suspect]
  2. ESTROPIPATE [Suspect]
  3. MEDROXYPROGESTERONE ACETATE [Suspect]
  4. PREMARIN [Suspect]
  5. PROVERA [Suspect]
  6. ESTROGENIC SUBSTANCE [Suspect]
  7. ORTHO-EST (ESTROPIPATE) [Suspect]
  8. OGDEN(ESTROPIPATE) [Suspect]

REACTIONS (1)
  - BREAST CANCER FEMALE [None]
